FAERS Safety Report 10583768 (Version 1)
Quarter: 2014Q4

REPORT INFORMATION
  Report Type: Spontaneous
  Country: GB (occurrence: GB)
  Receive Date: 20141114
  Receipt Date: 20141114
  Transmission Date: 20150529
  Serious: Yes (Other)
  Sender: FDA-Public Use
  Company Number: GB-009507513-1411GBR005917

PATIENT
  Sex: Male

DRUGS (5)
  1. DORZOLAMIDE HYDROCHLORIDE. [Suspect]
     Active Substance: DORZOLAMIDE HYDROCHLORIDE
     Dosage: TAKEN FOR 12-14 YEARS
     Route: 047
  2. APRINOX [Suspect]
     Active Substance: BENDROFLUMETHIAZIDE
     Dosage: TAKEN FOR 12-14 YEARS
  3. METFORMIN [Concomitant]
     Active Substance: METFORMIN HYDROCHLORIDE
     Indication: DIABETES MELLITUS
  4. TIMOLOL MALEATE. [Suspect]
     Active Substance: TIMOLOL MALEATE
     Dosage: TAKEN FOR 12-14 YEARS
     Route: 047
  5. TRAVATAN [Suspect]
     Active Substance: TRAVOPROST
     Dosage: TAKEN FOR 12-14 YEARS

REACTIONS (2)
  - Dizziness [Not Recovered/Not Resolved]
  - Gait disturbance [Not Recovered/Not Resolved]
